FAERS Safety Report 6698741-9 (Version None)
Quarter: 2010Q2

REPORT INFORMATION
  Report Type: 
  Country: None (occurrence: None)
  Receive Date: 20100427
  Receipt Date: 20100415
  Transmission Date: 20101027
  Serious: Yes (Hospitalization)
  Sender: FDA-Public Use
  Company Number: TR-ELI_LILLY_AND_COMPANY-TR201004003965

PATIENT

DRUGS (7)
  1. HUMULIN R [Suspect]
     Dosage: 3 U, EACH MORNING
     Route: 064
     Dates: start: 20091215, end: 20100316
  2. HUMULIN R [Suspect]
     Dosage: 4 U, DAILY (1/D)
     Route: 064
     Dates: start: 20091215, end: 20100316
  3. HUMULIN R [Suspect]
     Dosage: 4 U, EACH EVENING
     Route: 064
     Dates: start: 20091215, end: 20100316
  4. HUMULIN N [Suspect]
     Dosage: 6 U, EACH EVENING
     Route: 064
     Dates: start: 20091215, end: 20100316
  5. ELEVIT [Concomitant]
     Dosage: 1 D/F, DAILY (1/D)
     Route: 064
     Dates: end: 20100316
  6. FERRO SANOL /00023514/ [Concomitant]
     Dosage: 1 D/F, DAILY (1/D)
     Route: 064
     Dates: end: 20100316
  7. CORASPIN [Concomitant]
     Dosage: UNK, UNKNOWN
     Route: 064
     Dates: end: 20100201

REACTIONS (3)
  - DRUG EXPOSURE DURING PREGNANCY [None]
  - PREMATURE BABY [None]
  - SMALL FOR DATES BABY [None]
